FAERS Safety Report 18399798 (Version 1)
Quarter: 2020Q4

REPORT INFORMATION
  Report Type: Spontaneous
  Country: US (occurrence: US)
  Receive Date: 20201019
  Receipt Date: 20201019
  Transmission Date: 20210114
  Serious: No
  Sender: FDA-Public Use
  Company Number: US-ALLERGAN-2014498US

PATIENT
  Sex: Female

DRUGS (3)
  1. VRAYLAR [Suspect]
     Active Substance: CARIPRAZINE
     Indication: BIPOLAR I DISORDER
     Dosage: 4.5 MG
     Route: 065
  2. VRAYLAR [Suspect]
     Active Substance: CARIPRAZINE
     Indication: SCHIZOAFFECTIVE DISORDER
     Dosage: 3 MG
  3. VRAYLAR [Suspect]
     Active Substance: CARIPRAZINE
     Indication: PSYCHOTIC SYMPTOM

REACTIONS (2)
  - Psychotic disorder [Not Recovered/Not Resolved]
  - Hypomania [Recovered/Resolved]

NARRATIVE: CASE EVENT DATE: 20200319
